FAERS Safety Report 16046741 (Version 7)
Quarter: 2019Q3

REPORT INFORMATION
  Report Type: Spontaneous
  Country: US (occurrence: US)
  Receive Date: 20190307
  Receipt Date: 20190717
  Transmission Date: 20191004
  Serious: Yes (Other)
  Sender: FDA-Public Use
  Company Number: US-PFIZER INC-2019091452

PATIENT
  Age: 81 Year
  Sex: Female
  Weight: 58.95 kg

DRUGS (9)
  1. ELIQUIS [Concomitant]
     Active Substance: APIXABAN
     Indication: ANTICOAGULANT THERAPY
     Dosage: 2.5 MG, 2X/DAY
     Route: 048
  2. AMLODIPINE [Concomitant]
     Active Substance: AMLODIPINE BESYLATE
     Indication: BLOOD PRESSURE ABNORMAL
     Dosage: 2.5 MG, 2X/DAY
     Route: 048
  3. PANTOPRAZOLE [Concomitant]
     Active Substance: PANTOPRAZOLE
     Indication: GASTROOESOPHAGEAL REFLUX DISEASE
     Dosage: 20 MG, 1X/DAY
  4. BUSPIRONE [Concomitant]
     Active Substance: BUSPIRONE HYDROCHLORIDE
     Indication: ANXIETY
     Dosage: 15 MG, UNK
  5. TIKOSYN [Suspect]
     Active Substance: DOFETILIDE
     Indication: CARDIAC DISORDER
     Dosage: 125 UG, TWICE A DAY (ONE IN THE MORNING AND ONE AT NIGHT)
     Route: 048
     Dates: start: 201811
  6. MONTELUKAST [Concomitant]
     Active Substance: MONTELUKAST SODIUM
     Indication: SEASONAL ALLERGY
     Dosage: UNK UNK, AS NEEDED
  7. BUSPIRONE [Concomitant]
     Active Substance: BUSPIRONE HYDROCHLORIDE
     Dosage: 5 MG, UNK
  8. XANAX [Concomitant]
     Active Substance: ALPRAZOLAM
     Indication: ANXIETY
     Dosage: 0.25 MG, AS NEEDED
  9. AZMACORT [Concomitant]
     Active Substance: TRIAMCINOLONE ACETONIDE
     Indication: SEASONAL ALLERGY
     Dosage: UNK UNK, AS NEEDED
     Route: 055

REACTIONS (9)
  - Sinus bradycardia [Unknown]
  - Anxiety [Unknown]
  - Drug ineffective [Unknown]
  - Impaired driving ability [Unknown]
  - Supraventricular extrasystoles [Unknown]
  - Nervousness [Unknown]
  - Atrial fibrillation [Recovering/Resolving]
  - Cardiac disorder [Unknown]
  - Arthralgia [Unknown]

NARRATIVE: CASE EVENT DATE: 20181117
